FAERS Safety Report 13936374 (Version 1)
Quarter: 2017Q3

REPORT INFORMATION
  Report Type: Spontaneous
  Country: CN (occurrence: CN)
  Receive Date: 20170905
  Receipt Date: 20170905
  Transmission Date: 20171127
  Serious: Yes (Other)
  Sender: FDA-Public Use
  Company Number: CN-BAYER-2017-163196

PATIENT
  Age: 58 Year
  Sex: Male

DRUGS (1)
  1. BAYASPIRIN 100 MG [Suspect]
     Active Substance: ASPIRIN
     Dosage: 1 DF, QD, AFTER HAVING A MEAL
     Route: 048
     Dates: start: 2011

REACTIONS (9)
  - Appetite disorder [None]
  - Abdominal discomfort [None]
  - Hypokalaemia [None]
  - Decreased appetite [None]
  - Dyspepsia [None]
  - Hiccups [None]
  - Eructation [None]
  - Hyperlipidaemia [None]
  - Abdominal discomfort [None]

NARRATIVE: CASE EVENT DATE: 2017
